FAERS Safety Report 5907599-4 (Version None)
Quarter: 2008Q4

REPORT INFORMATION
  Report Type: 
  Country: None (occurrence: None)
  Receive Date: 20081003
  Receipt Date: 20081001
  Transmission Date: 20090506
  Serious: Yes (Hospitalization)
  Sender: FDA-Public Use
  Company Number: FR-MERCK-0810FRA00001

PATIENT
  Age: 89 Year
  Sex: Male

DRUGS (3)
  1. COZAAR [Suspect]
     Indication: HYPERTENSION
     Route: 048
     Dates: start: 20080612, end: 20080624
  2. TETRAZEPAM [Suspect]
     Indication: NECK PAIN
     Route: 048
     Dates: start: 20080612, end: 20080624
  3. THIOCOLCHICOSIDE [Suspect]
     Indication: NECK PAIN
     Route: 048
     Dates: start: 20080612, end: 20080624

REACTIONS (9)
  - BLOOD CREATINE PHOSPHOKINASE INCREASED [None]
  - CHEILITIS [None]
  - DRUG RASH WITH EOSINOPHILIA AND SYSTEMIC SYMPTOMS [None]
  - EOSINOPHILIA [None]
  - MYOGLOBINAEMIA [None]
  - RASH [None]
  - RENAL IMPAIRMENT [None]
  - SKIN EXFOLIATION [None]
  - TRANSAMINASES INCREASED [None]
